FAERS Safety Report 6667159-7 (Version None)
Quarter: 2010Q2

REPORT INFORMATION
  Report Type: 
  Country: None (occurrence: None)
  Receive Date: 20100405
  Receipt Date: 20100325
  Transmission Date: 20101027
  Serious: Yes (Other)
  Sender: FDA-Public Use
  Company Number: US-JNJFOC-20100210364

PATIENT
  Sex: Female
  Weight: 59.1 kg

DRUGS (10)
  1. REMICADE [Suspect]
     Indication: CROHN'S DISEASE
     Route: 042
  2. REMICADE [Suspect]
     Route: 042
  3. REMICADE [Suspect]
     Route: 042
  4. REMICADE [Suspect]
     Route: 042
  5. METHOTREXATE [Concomitant]
     Indication: CROHN'S DISEASE
  6. PREVACID [Concomitant]
     Indication: DYSPEPSIA
  7. CELEXA [Concomitant]
     Indication: DEPRESSION
  8. TOPAMAX [Concomitant]
     Indication: HEADACHE
  9. OSCAL VITAMIN D [Concomitant]
     Indication: OSTEOPENIA
  10. VITAMIN C [Concomitant]

REACTIONS (6)
  - DEEP VEIN THROMBOSIS [None]
  - DRUG EFFECT DECREASED [None]
  - FALL [None]
  - SERUM SICKNESS-LIKE REACTION [None]
  - TYPE IV HYPERSENSITIVITY REACTION [None]
  - UPPER LIMB FRACTURE [None]
